FAERS Safety Report 16597376 (Version 4)
Quarter: 2020Q1

REPORT INFORMATION
  Report Type: Spontaneous
  Country: US (occurrence: US)
  Receive Date: 20190719
  Receipt Date: 20200115
  Transmission Date: 20200409
  Serious: Yes (Hospitalization, Other)
  Sender: FDA-Public Use
  Company Number: US-PFIZER INC-2018528304

PATIENT
  Age: 75 Year
  Sex: Female
  Weight: 52.15 kg

DRUGS (8)
  1. FUROSEMIDE. [Concomitant]
     Active Substance: FUROSEMIDE
     Dosage: UNK
  2. REVATIO [Suspect]
     Active Substance: SILDENAFIL CITRATE
     Indication: PULMONARY HYPERTENSION
     Dosage: 12 DF, DAILY (12 TABLETS A DAY)
     Route: 048
     Dates: start: 2013
  3. KLOR-CON [Concomitant]
     Active Substance: POTASSIUM CHLORIDE
     Dosage: UNK
     Dates: start: 2006
  4. REVATIO [Suspect]
     Active Substance: SILDENAFIL CITRATE
     Dosage: 20 MG, 3X/DAY(FOUR 5 MG TABLETS THREE TIMES A DAY)
     Route: 048
  5. PRAZOSIN. [Concomitant]
     Active Substance: PRAZOSIN
     Indication: RAYNAUD^S PHENOMENON
     Dosage: UNK (STARTED IN 2005-2006)
  6. LEVOTHYROXINE SODIUM. [Concomitant]
     Active Substance: LEVOTHYROXINE SODIUM
     Dosage: UNK
  7. ASPIRIN [ACETYLSALICYLIC ACID] [Concomitant]
     Active Substance: ASPIRIN
     Dosage: UNK
     Dates: start: 2000
  8. REVATIO [Suspect]
     Active Substance: SILDENAFIL CITRATE
     Dosage: 80 MG, 3X/DAY (4 TABS OF 20 MG)
     Route: 048

REACTIONS (2)
  - Hypoacusis [Not Recovered/Not Resolved]
  - Overdose [Unknown]

NARRATIVE: CASE EVENT DATE: 2013
